FAERS Safety Report 7180678-2 (Version None)
Quarter: 2010Q4

REPORT INFORMATION
  Report Type: 
  Country: None (occurrence: None)
  Receive Date: 20101221
  Receipt Date: 20101214
  Transmission Date: 20110411
  Serious: Yes (Life-Threatening)
  Sender: FDA-Public Use
  Company Number: FR-ABBOTT-10P-056-0691316-00

PATIENT
  Sex: Female

DRUGS (6)
  1. SEVOFLURANE [Suspect]
     Indication: ANAESTHESIA
     Dates: start: 20101125
  2. BLEU PATENTE V [Suspect]
     Indication: ANAESTHESIA
     Route: 058
     Dates: start: 20101125, end: 20101125
  3. SUFENTA PRESERVATIVE FREE [Suspect]
     Indication: ANAESTHESIA
     Route: 042
     Dates: start: 20101125, end: 20101125
  4. NITROGEN PROTOXYDE [Suspect]
     Indication: ANAESTHESIA
     Route: 055
     Dates: start: 20101125, end: 20101125
  5. PROPOFOL [Concomitant]
     Indication: ANAESTHESIA
     Route: 042
     Dates: start: 20101125
  6. MIDAZOLAM [Concomitant]
     Indication: PRODUCT USED FOR UNKNOWN INDICATION
     Route: 042
     Dates: start: 20101125, end: 20101125

REACTIONS (3)
  - AGITATION [None]
  - RASH ERYTHEMATOUS [None]
  - SHOCK [None]
